FAERS Safety Report 7323349-1 (Version None)
Quarter: 2011Q1

REPORT INFORMATION
  Report Type: 
  Country: None (occurrence: None)
  Receive Date: 20110301
  Receipt Date: 20110216
  Transmission Date: 20110831
  Serious: Yes (Hospitalization)
  Sender: FDA-Public Use
  Company Number: FI-SANOFI-AVENTIS-2011SA010169

PATIENT
  Age: 78 Year
  Sex: Female

DRUGS (3)
  1. HYDROCHLOROTHIAZIDE [Concomitant]
     Route: 048
  2. MULTAQ [Suspect]
     Indication: ATRIAL FIBRILLATION
     Route: 048
     Dates: start: 20100413, end: 20101025
  3. WARFARIN [Concomitant]
     Route: 048

REACTIONS (8)
  - DIVERTICULITIS [None]
  - PYREXIA [None]
  - C-REACTIVE PROTEIN INCREASED [None]
  - GASTROINTESTINAL INFLAMMATION [None]
  - ABDOMINAL DISTENSION [None]
  - ABDOMINAL PAIN [None]
  - DIVERTICULUM [None]
  - DISCOMFORT [None]
